FAERS Safety Report 19133820 (Version 2)
Quarter: 2021Q2

REPORT INFORMATION
  Report Type: Spontaneous
  Country: NL (occurrence: NL)
  Receive Date: 20210414
  Receipt Date: 20210526
  Transmission Date: 20210717
  Serious: No
  Sender: FDA-Public Use
  Company Number: NL-PFIZER INC-2021204746

PATIENT
  Sex: Female

DRUGS (1)
  1. DEPO?PROVERA [Suspect]
     Active Substance: MEDROXYPROGESTERONE ACETATE
     Dosage: 150 UNK

REACTIONS (3)
  - Product use complaint [Unknown]
  - Device difficult to use [Unknown]
  - Needle issue [Unknown]
